FAERS Safety Report 18752525 (Version 3)
Quarter: 2021Q1

REPORT INFORMATION
  Report Type: Spontaneous
  Country: JP (occurrence: JP)
  Receive Date: 20210118
  Receipt Date: 20210122
  Transmission Date: 20210419
  Serious: Yes (Death)
  Sender: FDA-Public Use
  Company Number: JP-SA-2021SA012167

PATIENT
  Age: 60 Year
  Sex: Male
  Weight: 57.1 kg

DRUGS (9)
  1. CAPECITABINE. [Concomitant]
     Active Substance: CAPECITABINE
  2. TEGAFUR GIMERACIL AND OTERACIL POTASSIUM [Concomitant]
     Active Substance: GIMERACIL\OTERACIL\TEGAFUR
     Indication: COLON CANCER
     Route: 048
  3. TIPIRACIL HYDROCHLORIDE;TRIFLURIDINE [Concomitant]
     Active Substance: TIPIRACIL HYDROCHLORIDE\TRIFLURIDINE
     Indication: COLON CANCER
  4. ELPLAT [Suspect]
     Active Substance: OXALIPLATIN
     Indication: COLON CANCER
     Dosage: ONCE IN 2WEEKS SOLUTION FOR INJECTION/INFUSION
     Route: 041
  5. BEVACIZUMAB. [Suspect]
     Active Substance: BEVACIZUMAB
     Indication: COLON CANCER
     Route: 041
  6. CALCIUM LEVOFOLINATE [Suspect]
     Active Substance: LEVOLEUCOVORIN CALCIUM
     Indication: COLON CANCER
     Dosage: ONCE IN 2WEEKS, INTRAVENOUS INFUSION
     Route: 041
  7. FLUOROURACIL. [Concomitant]
     Active Substance: FLUOROURACIL
     Indication: COLON CANCER
     Dosage: INJECTION
     Route: 065
  8. PANITUMUMAB [Concomitant]
     Active Substance: PANITUMUMAB
     Indication: COLON CANCER
     Dosage: INJECTION
     Route: 065
  9. IRINOTECAN HYDROCHLORIDE TRIHYDRATE [IRINOTECAN HYDROCHLORIDE] [Concomitant]
     Active Substance: IRINOTECAN HYDROCHLORIDE
     Indication: COLON CANCER

REACTIONS (12)
  - Pulmonary artery thrombosis [Fatal]
  - Vasodilatation [Unknown]
  - Gastrooesophageal reflux disease [Unknown]
  - Hypoaesthesia [Unknown]
  - Hepatic fibrosis [Unknown]
  - Portal hypertension [Unknown]
  - Cardiac ventricular thrombosis [Fatal]
  - Pneumonia [Unknown]
  - Reflux gastritis [Unknown]
  - Pyelonephritis [Unknown]
  - Splenomegaly [Unknown]
  - Hypersplenism [Unknown]
